FAERS Safety Report 24578050 (Version 1)
Quarter: 2024Q4

REPORT INFORMATION
  Report Type: Report from Study
  Country: US (occurrence: US)
  Receive Date: 20241104
  Receipt Date: 20241104
  Transmission Date: 20250115
  Serious: Yes (Hospitalization, Other)
  Sender: BAUSCH AND LOMB
  Company Number: US-BAUSCHBL-2024BNL036659

PATIENT
  Age: 81 Year
  Sex: Female

DRUGS (1)
  1. VYZULTA [Suspect]
     Active Substance: LATANOPROSTENE BUNOD
     Indication: Product used for unknown indication
     Route: 065

REACTIONS (1)
  - Cerebrovascular accident [Unknown]
